FAERS Safety Report 19488383 (Version 2)
Quarter: 2021Q3

REPORT INFORMATION
  Report Type: Other
  Country: US (occurrence: US)
  Receive Date: 20210702
  Receipt Date: 20210808
  Transmission Date: 20211014
  Serious: Yes (Other)
  Sender: FDA-Public Use
  Company Number: US-ROCHE-2859194

PATIENT
  Sex: Male

DRUGS (1)
  1. XELODA [Suspect]
     Active Substance: CAPECITABINE
     Indication: COLORECTAL CANCER METASTATIC
     Dosage: TAKE 4 TABLET(S) BY MOUTH TWICE A DAY FOR 14 DAYS
     Route: 048

REACTIONS (3)
  - Dysgraphia [Unknown]
  - Speech disorder [Unknown]
  - Cerebrovascular accident [Unknown]
